FAERS Safety Report 7536794-6 (Version None)
Quarter: 2011Q2

REPORT INFORMATION
  Report Type: 
  Country: None (occurrence: None)
  Receive Date: 20110608
  Receipt Date: 20110608
  Transmission Date: 20111010
  Serious: Yes (Other)
  Sender: FDA-Public Use
  Company Number: None

PATIENT
  Sex: Female
  Weight: 52.1637 kg

DRUGS (1)
  1. FLEXERIL [Suspect]
     Indication: MUSCLE SPASMS
     Dosage: 1 PILL 1X DAY EVES PO  AS NEEDED
     Route: 048
     Dates: start: 20090101, end: 20100101

REACTIONS (2)
  - NIGHTMARE [None]
  - HOMICIDAL IDEATION [None]
